FAERS Safety Report 10099534 (Version 1)
Quarter: 2014Q2

REPORT INFORMATION
  Report Type: Spontaneous
  Country: GB (occurrence: GB)
  Receive Date: 20140423
  Receipt Date: 20140423
  Transmission Date: 20141212
  Serious: Yes (Hospitalization)
  Sender: FDA-Public Use
  Company Number: GB-MYLANLABS-2014S1008441

PATIENT
  Age: 28 Year
  Sex: 0

DRUGS (12)
  1. CIPROFLOXACIN [Suspect]
     Indication: NEUTROPENIC SEPSIS
     Route: 041
     Dates: start: 20120514, end: 20120521
  2. CIPROFLOXACIN [Suspect]
     Indication: NEUTROPENIC SEPSIS
     Route: 048
     Dates: start: 20120419, end: 20120503
  3. CO-AMOXICLAV [Suspect]
     Dosage: 500MG/125MG
     Route: 048
     Dates: start: 20120523, end: 20120530
  4. ITRACONAZOLE [Suspect]
     Indication: NEUTROPENIC SEPSIS
     Dosage: 50MG/5ML
     Dates: start: 20120419, end: 20120428
  5. TAZOCIN [Suspect]
     Route: 048
     Dates: start: 20120503, end: 20120506
  6. AMBISOME [Suspect]
     Route: 041
     Dates: start: 20120428, end: 20120523
  7. AMBISOME [Suspect]
  8. GENTAMICIN [Suspect]
     Dosage: STAT DOSE. 80MG/2ML.
     Route: 045
     Dates: start: 20120523
  9. MEROPENEM [Suspect]
     Indication: NEUTROPENIC SEPSIS
     Route: 041
     Dates: start: 20120506, end: 20120514
  10. PENTAMIDINE [Suspect]
     Dosage: STAT DOSE. 300MG/5ML.
     Dates: start: 20120503
  11. PANTOPRAZOLE [Concomitant]
  12. LANSOPRAZOLE [Concomitant]

REACTIONS (1)
  - Clostridium difficile infection [Unknown]
